FAERS Safety Report 6186627-8 (Version None)
Quarter: 2009Q2

REPORT INFORMATION
  Report Type: 
  Country: None (occurrence: None)
  Receive Date: 20090512
  Receipt Date: 20090504
  Transmission Date: 20091009
  Serious: Yes (Death)
  Sender: FDA-Public Use
  Company Number: CH-PFIZER INC-2009207623

PATIENT

DRUGS (11)
  1. NORVASC [Suspect]
     Dosage: 10 MG, 1X/DAY
     Route: 048
     Dates: start: 20080101, end: 20090218
  2. KLACID [Interacting]
     Dosage: 500 MG, 2X/DAY
     Route: 048
     Dates: start: 20090216
  3. ROCEPHIN [Concomitant]
     Dosage: 2 G, 1X/DAY
     Route: 042
     Dates: start: 20090216, end: 20090218
  4. TIENAM [Concomitant]
     Dosage: 500 MG, 4X/DAY
     Dates: start: 20090218
  5. KONAKION [Concomitant]
     Dosage: 10 MG, 1X/DAY
  6. FOLVITE [Concomitant]
     Dosage: 5 MG, 1X/DAY
     Route: 048
  7. ASPIRIN [Concomitant]
     Dosage: 100 MG, 1X/DAY
     Route: 048
  8. DOMPERIDONE [Concomitant]
     Dosage: 10 MG, 3X/DAY
     Route: 048
  9. IMPORTAL [Concomitant]
     Dosage: 15 ML, 3X/DAY
     Route: 048
  10. CLEXANE [Concomitant]
     Dosage: 40 MG, 1X/DAY
     Route: 058
     Dates: end: 20090217
  11. NEXIUM [Concomitant]
     Dosage: 40 MG, 1X/DAY
     Route: 048

REACTIONS (3)
  - CONDITION AGGRAVATED [None]
  - DRUG INTERACTION [None]
  - SHOCK [None]
